FAERS Safety Report 7965656-5 (Version None)
Quarter: 2011Q4

REPORT INFORMATION
  Report Type: 
  Country: None (occurrence: None)
  Receive Date: 20111208
  Receipt Date: 20111201
  Transmission Date: 20120403
  Serious: Yes (Hospitalization)
  Sender: FDA-Public Use
  Company Number: US-PFIZER INC-2011293836

PATIENT
  Sex: Female
  Weight: 100.7 kg

DRUGS (6)
  1. METHYLPREDNISOLONE SODIUM SUCCINATE [Suspect]
     Indication: ASTHMA
     Dosage: UNK
     Dates: start: 20111031, end: 20111102
  2. MEDROL [Suspect]
     Indication: ASTHMA
     Dosage: UNK
     Dates: start: 20111030
  3. BLINDED THERAPY [Suspect]
     Indication: ASTHMA
     Dosage: UNK
     Dates: start: 20111020, end: 20111028
  4. ADVAIR DISKUS 100/50 [Suspect]
     Indication: ASTHMA
     Dosage: UNK
     Dates: start: 20111028
  5. SINGULAIR [Suspect]
     Indication: ASTHMA
     Dosage: UNK
     Dates: start: 20111028
  6. XOPENEX [Suspect]
     Indication: ASTHMA
     Dosage: UNK
     Dates: start: 20111031, end: 20111102

REACTIONS (1)
  - ASTHMA [None]
